FAERS Safety Report 8966249 (Version 1)
Quarter: 2012Q4

REPORT INFORMATION
  Report Type: 
  Country: MX (occurrence: MX)
  Receive Date: 20121217
  Receipt Date: 20121217
  Transmission Date: 20130627
  Serious: Yes (Death, Hospitalization)
  Sender: FDA-Public Use
  Company Number: PHHY2012MX115608

PATIENT
  Age: 79 Year
  Sex: Female

DRUGS (1)
  1. RITALIN LA [Suspect]
     Dosage: 1 DF daily
     Route: 048
     Dates: start: 201211

REACTIONS (3)
  - Ulcer haemorrhage [Fatal]
  - Renal disorder [Fatal]
  - Pneumonia [Fatal]
